FAERS Safety Report 8208724-5 (Version None)
Quarter: 2012Q1

REPORT INFORMATION
  Report Type: 
  Country: None (occurrence: None)
  Receive Date: 20120314
  Receipt Date: 20120312
  Transmission Date: 20120608
  Serious: Yes (Other)
  Sender: FDA-Public Use
  Company Number: US-PFIZER INC-2012065320

PATIENT
  Sex: Female
  Weight: 74.376 kg

DRUGS (5)
  1. ZOLOFT [Concomitant]
     Dosage: UNK
  2. LYRICA [Suspect]
     Indication: PAIN IN EXTREMITY
  3. LYRICA [Suspect]
     Indication: BACK PAIN
     Dosage: 50 MG, 1X/DAY
     Route: 048
     Dates: start: 20120201, end: 20120201
  4. ZOCOR [Concomitant]
     Dosage: UNK
  5. LYRICA [Suspect]
     Indication: ARTHRALGIA
     Dosage: 50 MG, 2X/DAY
     Route: 048
     Dates: start: 20120201, end: 20120309

REACTIONS (4)
  - GOITRE [None]
  - THYROID CYST [None]
  - ARTHRALGIA [None]
  - OROPHARYNGEAL PAIN [None]
